FAERS Safety Report 9800145 (Version 1)
Quarter: 2014Q1

REPORT INFORMATION
  Report Type: Spontaneous
  Country: US (occurrence: US)
  Receive Date: 20140106
  Receipt Date: 20140106
  Transmission Date: 20141002
  Serious: Yes (Hospitalization, Other)
  Sender: FDA-Public Use
  Company Number: US-GILEAD-2014-0091290

PATIENT
  Age: 66 Year
  Sex: Female

DRUGS (12)
  1. LETAIRIS [Suspect]
     Indication: PRODUCT USED FOR UNKNOWN INDICATION
     Dosage: 10 MG, QD
     Route: 048
     Dates: start: 20101230
  2. PLAQUENIL                          /00072603/ [Concomitant]
  3. LEVAQUIN [Concomitant]
  4. FENTANYL [Concomitant]
  5. METAXALONE [Concomitant]
  6. CELLCEPT                           /01275102/ [Concomitant]
  7. PRILOSEC                           /00661201/ [Concomitant]
  8. AMITRIPTYLINE [Concomitant]
  9. TRAMADOL [Concomitant]
  10. NORVASC [Concomitant]
  11. CELEXA                             /00582602/ [Concomitant]
  12. BENADRYL                           /00000402/ [Concomitant]

REACTIONS (1)
  - Pneumonia [Not Recovered/Not Resolved]
